FAERS Safety Report 7954568-9 (Version None)
Quarter: 2011Q4

REPORT INFORMATION
  Report Type: 
  Country: None (occurrence: None)
  Receive Date: 20111202
  Receipt Date: 20111123
  Transmission Date: 20120403
  Serious: Yes (Other)
  Sender: FDA-Public Use
  Company Number: PHHY2011CH103066

PATIENT
  Age: 54 Year
  Sex: Male

DRUGS (1)
  1. TASIGNA [Suspect]
     Indication: CHRONIC MYELOID LEUKAEMIA
     Dosage: 300 MG, TWICE A DAY
     Route: 048
     Dates: start: 20110201, end: 20110901

REACTIONS (2)
  - BLOOD CREATININE INCREASED [None]
  - MYOSITIS [None]
